FAERS Safety Report 13409002 (Version 2)
Quarter: 2017Q2

REPORT INFORMATION
  Report Type: Spontaneous
  Country: US (occurrence: US)
  Receive Date: 20170406
  Receipt Date: 20170607
  Transmission Date: 20170830
  Serious: No
  Sender: FDA-Public Use
  Company Number: US-JNJFOC-20170112840

PATIENT
  Sex: Male

DRUGS (23)
  1. RISPERDAL [Suspect]
     Active Substance: RISPERIDONE
     Indication: ABNORMAL BEHAVIOUR
     Route: 048
  2. RISPERDAL [Suspect]
     Active Substance: RISPERIDONE
     Indication: SLEEP DISORDER
     Route: 048
  3. RISPERIDONE. [Suspect]
     Active Substance: RISPERIDONE
     Indication: SLEEP DISORDER
     Route: 048
     Dates: start: 20081007, end: 20090323
  4. RISPERDAL [Suspect]
     Active Substance: RISPERIDONE
     Indication: ABNORMAL BEHAVIOUR
     Route: 048
     Dates: end: 20140609
  5. RISPERDAL [Suspect]
     Active Substance: RISPERIDONE
     Indication: SLEEP DISORDER
     Route: 048
     Dates: start: 20040428
  6. RISPERDAL [Suspect]
     Active Substance: RISPERIDONE
     Indication: SLEEP DISORDER
     Route: 048
     Dates: end: 20140609
  7. RISPERDAL [Suspect]
     Active Substance: RISPERIDONE
     Indication: SLEEP DISORDER
     Route: 048
     Dates: start: 20061017, end: 200807
  8. RISPERIDONE. [Suspect]
     Active Substance: RISPERIDONE
     Indication: ABNORMAL BEHAVIOUR
     Route: 048
  9. RISPERIDONE. [Suspect]
     Active Substance: RISPERIDONE
     Indication: SLEEP DISORDER
     Route: 048
     Dates: start: 20090725, end: 20140930
  10. RISPERIDONE. [Suspect]
     Active Substance: RISPERIDONE
     Indication: SLEEP DISORDER
     Route: 048
  11. RISPERDAL [Suspect]
     Active Substance: RISPERIDONE
     Indication: ABNORMAL BEHAVIOUR
     Route: 048
     Dates: start: 20061017, end: 200807
  12. RISPERDAL [Suspect]
     Active Substance: RISPERIDONE
     Indication: ABNORMAL BEHAVIOUR
     Route: 048
     Dates: start: 20040112
  13. RISPERIDONE. [Suspect]
     Active Substance: RISPERIDONE
     Indication: PRODUCT USED FOR UNKNOWN INDICATION
     Route: 048
  14. RISPERDAL [Suspect]
     Active Substance: RISPERIDONE
     Indication: SLEEP DISORDER
     Route: 048
     Dates: start: 20040112
  15. RISPERIDONE. [Suspect]
     Active Substance: RISPERIDONE
     Indication: ABNORMAL BEHAVIOUR
     Route: 048
     Dates: start: 20080719, end: 20080829
  16. RISPERDAL [Suspect]
     Active Substance: RISPERIDONE
     Indication: ABNORMAL BEHAVIOUR
     Route: 048
     Dates: start: 20040428
  17. RISPERIDONE. [Suspect]
     Active Substance: RISPERIDONE
     Indication: SLEEP DISORDER
     Route: 048
     Dates: start: 20080719, end: 20080829
  18. RISPERDAL [Suspect]
     Active Substance: RISPERIDONE
     Indication: ABNORMAL BEHAVIOUR
     Route: 048
     Dates: start: 20040112, end: 2006
  19. RISPERIDONE. [Suspect]
     Active Substance: RISPERIDONE
     Indication: ABNORMAL BEHAVIOUR
     Route: 048
     Dates: start: 20081007, end: 20090323
  20. RISPERIDONE. [Suspect]
     Active Substance: RISPERIDONE
     Indication: SLEEP DISORDER
     Route: 048
     Dates: start: 20090503
  21. RISPERDAL [Suspect]
     Active Substance: RISPERIDONE
     Indication: SLEEP DISORDER
     Route: 048
     Dates: start: 20040112, end: 2006
  22. RISPERIDONE. [Suspect]
     Active Substance: RISPERIDONE
     Indication: ABNORMAL BEHAVIOUR
     Route: 048
     Dates: start: 20090503
  23. RISPERIDONE. [Suspect]
     Active Substance: RISPERIDONE
     Indication: ABNORMAL BEHAVIOUR
     Route: 048
     Dates: start: 20090725, end: 20140930

REACTIONS (4)
  - Mental disorder [Unknown]
  - Emotional distress [Unknown]
  - Weight increased [Unknown]
  - Gynaecomastia [Unknown]
